FAERS Safety Report 5872089-4 (Version None)
Quarter: 2008Q3

REPORT INFORMATION
  Report Type: 
  Country: None (occurrence: None)
  Receive Date: 20080905
  Receipt Date: 20080829
  Transmission Date: 20090109
  Serious: Yes (Death)
  Sender: FDA-Public Use
  Company Number: A0745821A

PATIENT
  Age: 62 Year
  Sex: Female

DRUGS (1)
  1. SERETIDE [Suspect]
     Indication: ASTHMA
     Dosage: 1PUFF TWICE PER DAY
     Route: 055
     Dates: start: 20070501

REACTIONS (3)
  - ARTERIOSCLEROSIS CORONARY ARTERY [None]
  - DIABETES MELLITUS [None]
  - MYOCARDIAL ISCHAEMIA [None]
